FAERS Safety Report 17201306 (Version 1)
Quarter: 2019Q4

REPORT INFORMATION
  Report Type: Spontaneous
  Country: GB (occurrence: GB)
  Receive Date: 20191226
  Receipt Date: 20191226
  Transmission Date: 20200122
  Serious: Yes (Other)
  Sender: FDA-Public Use
  Company Number: GB-ASCEND THERAPEUTICS US, LLC-2077547

PATIENT
  Age: 47 Year
  Sex: Female

DRUGS (3)
  1. UTROGESTAN [Suspect]
     Active Substance: PROGESTERONE
  2. ESTROGEL [Suspect]
     Active Substance: ESTRADIOL
     Indication: PRODUCT USED FOR UNKNOWN INDICATION
  3. UTROGESTAN [Suspect]
     Active Substance: PROGESTERONE
     Dates: start: 20191107

REACTIONS (2)
  - Nipple pain [Not Recovered/Not Resolved]
  - Breast pain [Not Recovered/Not Resolved]

NARRATIVE: CASE EVENT DATE: 20191107
